FAERS Safety Report 23999420 (Version 1)
Quarter: 2024Q2

REPORT INFORMATION
  Report Type: Report from Study
  Country: US (occurrence: None)
  Receive Date: 20240621
  Receipt Date: 20240621
  Transmission Date: 20240716
  Serious: Yes (Hospitalization)
  Sender: FDA-Public Use
  Company Number: 2024A140681

PATIENT
  Sex: Female

DRUGS (10)
  1. FASENRA [Suspect]
     Active Substance: BENRALIZUMAB
     Indication: Asthma
     Dosage: INJECT 30 MG (1 PEN) SUBCUTANEOUSLY IN WEEK 0 AND WEEK 430.0MG/ML UNKNOWN
     Route: 058
     Dates: start: 20240606
  2. ALBUTEROL [Concomitant]
     Active Substance: ALBUTEROL
     Dosage: SU AER 108(90
  3. ALBUTEROL [Concomitant]
     Active Substance: ALBUTEROL
     Dosage: SU NEB 0.63MG/3
  4. DICYCLOMINE [Concomitant]
     Active Substance: DICYCLOMINE HYDROCHLORIDE
  5. DILTIAZEM HC [Concomitant]
  6. INSULIN NOS [Concomitant]
     Active Substance: INSULIN NOS
     Dosage: USP SOL 100 UNIT
  7. METFORMIN HYDROCHLORIDE [Concomitant]
     Active Substance: METFORMIN HYDROCHLORIDE
  8. METOPROLOL S TB2 [Concomitant]
  9. TRELEGY ELLI AEP [Concomitant]
     Dosage: 100-62.5
  10. VALSARTAN [Concomitant]
     Active Substance: VALSARTAN

REACTIONS (1)
  - Myocardial infarction [Recovered/Resolved]
